FAERS Safety Report 9969964 (Version 2)
Quarter: 2014Q1

REPORT INFORMATION
  Report Type: Spontaneous
  Country: US (occurrence: US)
  Receive Date: 20140306
  Receipt Date: 20140306
  Transmission Date: 20141002
  Serious: No
  Sender: FDA-Public Use
  Company Number: US-DRREDDYS-USA/USA/13/0028407

PATIENT
  Age: 64 Year
  Sex: Female

DRUGS (3)
  1. LEVETIRACETAM 500 MG [Suspect]
     Indication: CONVULSION
     Route: 048
     Dates: start: 20130303
  2. VALIUM [Concomitant]
     Indication: SLEEP DISORDER
     Route: 065
     Dates: start: 2002
  3. OXYCODONE [Concomitant]
     Indication: PRODUCT USED FOR UNKNOWN INDICATION
     Route: 065

REACTIONS (1)
  - Crying [Not Recovered/Not Resolved]
